FAERS Safety Report 9254347 (Version 2)
Quarter: 2013Q3

REPORT INFORMATION
  Report Type: Spontaneous
  Country: US (occurrence: None)
  Receive Date: 20130422
  Receipt Date: 20130801
  Transmission Date: 20140515
  Serious: Yes (Hospitalization)
  Sender: FDA-Public Use
  Company Number: US-000681

PATIENT
  Age: 26 Year
  Sex: Male

DRUGS (2)
  1. TEDUGLUTIDE\WATER [Suspect]
     Indication: SHORT-BOWEL SYNDROME
     Dates: start: 20130222
  2. SOLUITONS FOR PARENTERAL NUTRITION [Concomitant]

REACTIONS (6)
  - Abdominal pain [None]
  - Cholelithiasis [None]
  - Liver abscess [None]
  - Acute respiratory failure [None]
  - Pericardial effusion [None]
  - Splenic infarction [None]
